FAERS Safety Report 25529365 (Version 1)
Quarter: 2025Q3

REPORT INFORMATION
  Report Type: Spontaneous
  Country: GB (occurrence: GB)
  Receive Date: 20250708
  Receipt Date: 20250708
  Transmission Date: 20251021
  Serious: Yes (Death, Other)
  Sender: TEVA
  Company Number: GB-TEVA-VS-3348818

PATIENT
  Sex: Male

DRUGS (1)
  1. POSACONAZOLE [Suspect]
     Active Substance: POSACONAZOLE
     Indication: Mucormycosis
     Route: 065

REACTIONS (3)
  - Mucormycosis [Fatal]
  - Cytopenia [Unknown]
  - Drug ineffective [Fatal]
